FAERS Safety Report 13564633 (Version 1)
Quarter: 2017Q2

REPORT INFORMATION
  Report Type: Spontaneous
  Country: IR (occurrence: IR)
  Receive Date: 20170519
  Receipt Date: 20170519
  Transmission Date: 20170830
  Serious: Yes (Disabling, Other)
  Sender: FDA-Public Use
  Company Number: IR-APOPHARMA USA, INC.-2017AP012224

PATIENT
  Age: 33 Month

DRUGS (1)
  1. ALKERAN [Suspect]
     Active Substance: MELPHALAN
     Indication: RETINOBLASTOMA
     Dosage: 50 ?G, SINGLE
     Route: 050

REACTIONS (3)
  - Vitreous haemorrhage [Unknown]
  - Atrophy of globe [Not Recovered/Not Resolved]
  - Hypotony of eye [Unknown]
